FAERS Safety Report 14226727 (Version 2)
Quarter: 2017Q4

REPORT INFORMATION
  Report Type: Report from Study
  Country: US (occurrence: US)
  Receive Date: 20171127
  Receipt Date: 20171129
  Transmission Date: 20180321
  Serious: Yes (Hospitalization)
  Sender: FDA-Public Use
  Company Number: PHHO2017US014949

PATIENT
  Age: 80 Year
  Sex: Female
  Weight: 79 kg

DRUGS (12)
  1. PREDNISONE. [Concomitant]
     Active Substance: PREDNISONE
     Dosage: 5 MG, PRN
     Route: 048
     Dates: start: 20090101, end: 20171003
  2. WARFARIN [Concomitant]
     Active Substance: WARFARIN
     Dosage: 5 MG, PRN
     Route: 048
     Dates: start: 20110101, end: 20171003
  3. FUROSEMIDE. [Concomitant]
     Active Substance: FUROSEMIDE
     Dosage: 60 MG, QD [40 MG, QD (AM) , 20 MG, QD (PM)]
     Route: 048
     Dates: start: 20150101
  4. FUROSEMIDE. [Concomitant]
     Active Substance: FUROSEMIDE
     Route: 048
     Dates: start: 20150101, end: 20171003
  5. FUROSEMIDE. [Concomitant]
     Active Substance: FUROSEMIDE
     Route: 048
     Dates: start: 20150101, end: 20171003
  6. ATORVASTATIN [Concomitant]
     Active Substance: ATORVASTATIN
     Indication: HYPERLIPIDAEMIA
     Dosage: 20 MG, QD
     Route: 048
     Dates: start: 20100101, end: 20171003
  7. ENTRESTO [Suspect]
     Active Substance: SACUBITRIL\VALSARTAN
     Indication: CARDIAC FAILURE
     Dosage: 200 MG, BID
     Route: 048
     Dates: start: 20170227, end: 20171003
  8. KLOR-CON [Concomitant]
     Active Substance: POTASSIUM CHLORIDE
     Indication: PROPHYLAXIS
     Dosage: 20 MEQ, BID
     Route: 048
     Dates: start: 20170127, end: 20171003
  9. CALCIUM [Concomitant]
     Active Substance: CALCIUM
     Indication: GENERAL PHYSICAL HEALTH DETERIORATION
     Dosage: 600/200 MG, QD
     Route: 048
     Dates: start: 2010
  10. LCZ696 [Suspect]
     Active Substance: SACUBITRIL\VALSARTAN
  11. METOPROLOL. [Concomitant]
     Active Substance: METOPROLOL
     Indication: HYPERTENSION
     Dosage: 100 MG, BID
     Route: 048
     Dates: start: 20170214, end: 20171003
  12. VALSARTAN. [Suspect]
     Active Substance: VALSARTAN

REACTIONS (5)
  - Cardiac failure congestive [Recovered/Resolved]
  - Fall [None]
  - Pulmonary oedema [None]
  - Atrial fibrillation [Recovered/Resolved]
  - Fractured sacrum [None]

NARRATIVE: CASE EVENT DATE: 20171003
